FAERS Safety Report 8374816-3 (Version None)
Quarter: 2012Q2

REPORT INFORMATION
  Report Type: 
  Country: None (occurrence: None)
  Receive Date: 20120521
  Receipt Date: 20120514
  Transmission Date: 20120825
  Serious: Yes (Hospitalization, Other)
  Sender: FDA-Public Use
  Company Number: FR-PFIZER INC-2012116369

PATIENT
  Age: 83 Year
  Sex: Female

DRUGS (11)
  1. LASIX [Concomitant]
  2. SULFARLEM [Concomitant]
  3. POLYETHYLENE GLYCOL [Concomitant]
  4. URBANYL [Suspect]
     Dosage: 10 MG, 3X/DAY
     Route: 048
     Dates: start: 20111108, end: 20120220
  5. LEXOMIL [Suspect]
     Dosage: 0.5 DF, 1X/DAY
     Route: 048
     Dates: start: 20110101
  6. NITROGLYCERIN [Concomitant]
  7. RABEPRAZOLE SODIUM [Concomitant]
  8. DURAGESIC-100 [Suspect]
     Dosage: 12.6 MG/31.5 CM2 TRANSDERMAL DEVICE, 1 PATCH EVERY 72 HOURS
     Route: 062
     Dates: start: 20111108, end: 20120220
  9. LYRICA [Suspect]
     Dosage: 50 MG, 1X/DAY
     Route: 048
     Dates: start: 20110913, end: 20120220
  10. ALDACTONE [Concomitant]
  11. PROCORALAN [Concomitant]

REACTIONS (3)
  - DEPRESSED LEVEL OF CONSCIOUSNESS [None]
  - COMA [None]
  - RESPIRATORY DISTRESS [None]
